FAERS Safety Report 5331217-X (Version None)
Quarter: 2007Q2

REPORT INFORMATION
  Report Type: 
  Country: None (occurrence: None)
  Receive Date: 20070522
  Receipt Date: 20070511
  Transmission Date: 20071010
  Serious: Yes (Death, Life-Threatening, Hospitalization)
  Sender: FDA-Public Use
  Company Number: US-MERCK-0703USA03672

PATIENT
  Age: 62 Year
  Sex: Male
  Weight: 86 kg

DRUGS (12)
  1. EMEND [Suspect]
     Indication: PROPHYLAXIS OF NAUSEA AND VOMITING
     Route: 048
     Dates: start: 20070228, end: 20070228
  2. EMEND [Suspect]
     Route: 048
     Dates: start: 20070301, end: 20070301
  3. CISPLATIN [Suspect]
     Indication: SMALL CELL LUNG CANCER STAGE UNSPECIFIED
     Route: 042
     Dates: start: 20070205, end: 20070205
  4. CISPLATIN [Suspect]
     Route: 042
     Dates: start: 20070228, end: 20070228
  5. ETOPOSIDE [Suspect]
     Indication: SMALL CELL LUNG CANCER STAGE UNSPECIFIED
     Route: 042
     Dates: start: 20070205, end: 20070207
  6. ETOPOSIDE [Suspect]
     Route: 042
     Dates: start: 20070228, end: 20070302
  7. DECADRON [Concomitant]
     Indication: ANTIEMETIC SUPPORTIVE CARE
     Route: 048
     Dates: start: 20070205, end: 20070205
  8. DECADRON [Concomitant]
     Route: 048
     Dates: start: 20070228, end: 20070228
  9. DECADRON [Concomitant]
     Route: 048
     Dates: start: 20070206, end: 20070208
  10. DECADRON [Concomitant]
     Route: 048
     Dates: start: 20070301, end: 20070303
  11. ONDANSETRON [Concomitant]
     Indication: ANTIEMETIC SUPPORTIVE CARE
     Route: 048
     Dates: start: 20070205, end: 20070207
  12. ONDANSETRON [Concomitant]
     Route: 048
     Dates: start: 20070228, end: 20070302

REACTIONS (5)
  - CATHETER SITE PAIN [None]
  - DYSPNOEA [None]
  - NEUTROPENIA [None]
  - SEPSIS [None]
  - SMALL CELL LUNG CANCER STAGE UNSPECIFIED [None]
